FAERS Safety Report 11743550 (Version 7)
Quarter: 2016Q4

REPORT INFORMATION
  Report Type: Spontaneous
  Country: US (occurrence: US)
  Receive Date: 20151116
  Receipt Date: 20161019
  Transmission Date: 20170206
  Serious: Yes (Life-Threatening, Congenital Anomaly, Other)
  Sender: FDA-Public Use
  Company Number: PHEH2015US023706

PATIENT
  Sex: Male

DRUGS (1)
  1. ZOFRAN [Suspect]
     Active Substance: ONDANSETRON HYDROCHLORIDE
     Indication: FOETAL EXPOSURE DURING PREGNANCY
     Dosage: MOTHER DOSE: 1 DF Q8H
     Route: 064

REACTIONS (14)
  - Atrial septal defect [Not Recovered/Not Resolved]
  - Foetal exposure during pregnancy [Unknown]
  - Injury [Unknown]
  - Anhedonia [Unknown]
  - Malaise [Unknown]
  - Heart disease congenital [Unknown]
  - Cardiac murmur [Recovered/Resolved]
  - Pain [Unknown]
  - Congenital anomaly [Unknown]
  - Cyanosis [Unknown]
  - Anxiety [Unknown]
  - Patent ductus arteriosus [Unknown]
  - Premature baby [Unknown]
  - Developmental delay [Unknown]

NARRATIVE: CASE EVENT DATE: 2013
